FAERS Safety Report 18414278 (Version 2)
Quarter: 2021Q1

REPORT INFORMATION
  Report Type: Spontaneous
  Country: ES (occurrence: ES)
  Receive Date: 20201022
  Receipt Date: 20210203
  Transmission Date: 20210419
  Serious: Yes (Other)
  Sender: FDA-Public Use
  Company Number: NVSC2020ES277997

PATIENT
  Age: 52 Year
  Sex: Female

DRUGS (3)
  1. IXEKIZUMAB [Suspect]
     Active Substance: IXEKIZUMAB
     Indication: PSORIATIC ARTHROPATHY
     Dosage: UNK
     Route: 065
     Dates: start: 20200128, end: 20200904
  2. METHOTREXATE. [Suspect]
     Active Substance: METHOTREXATE
     Indication: PRODUCT USED FOR UNKNOWN INDICATION
     Dosage: UNK
     Route: 065
  3. IXEKIZUMAB [Suspect]
     Active Substance: IXEKIZUMAB
     Indication: PSORIASIS

REACTIONS (18)
  - Syncope [Unknown]
  - Injection site haemorrhage [Unknown]
  - Injection site rash [Unknown]
  - Fall [Unknown]
  - Injection site warmth [Unknown]
  - Injection site swelling [Unknown]
  - Dizziness [Unknown]
  - Arthralgia [Unknown]
  - Blood pressure increased [Unknown]
  - Blood glucose decreased [Unknown]
  - Injection site haematoma [Unknown]
  - Asthenia [Unknown]
  - Tachycardia [Unknown]
  - Frequent bowel movements [Unknown]
  - Psoriasis [Unknown]
  - Injection site pain [Unknown]
  - Ligament sprain [Unknown]
  - Fatigue [Unknown]

NARRATIVE: CASE EVENT DATE: 20200227
